FAERS Safety Report 5159381-6 (Version None)
Quarter: 2006Q4

REPORT INFORMATION
  Report Type: 
  Country: None (occurrence: None)
  Receive Date: 20060918
  Receipt Date: 20060803
  Transmission Date: 20070319
  Serious: Yes (Hospitalization)
  Sender: FDA-Public Use
  Company Number: US-JNJFOC-20060802641

PATIENT
  Sex: Female

DRUGS (1)
  1. ORTHO EVRA [Suspect]
     Dosage: TRANSDERMAL
     Route: 062
     Dates: start: 20040501, end: 20040601

REACTIONS (1)
  - CEREBROVASCULAR ACCIDENT [None]
